FAERS Safety Report 9036361 (Version 1)
Quarter: 2013Q1

REPORT INFORMATION
  Report Type: Spontaneous
  Country: US (occurrence: None)
  Receive Date: 20130117
  Receipt Date: 20130117
  Transmission Date: 20140127
  Serious: No
  Sender: FDA-Public Use
  Company Number: None

PATIENT
  Age: 65 Year
  Sex: Male
  Weight: 65.77 kg

DRUGS (1)
  1. BENAZEPRIL [Suspect]
     Indication: HYPERTENSION
     Dosage: 1 TABLET TWICE A DAY ORAL
     Route: 048
     Dates: start: 20121115, end: 20130105

REACTIONS (2)
  - Product substitution issue [None]
  - Blood pressure inadequately controlled [None]
